FAERS Safety Report 21285695 (Version 3)
Quarter: 2022Q4

REPORT INFORMATION
  Report Type: Spontaneous
  Country: DE (occurrence: DE)
  Receive Date: 20220902
  Receipt Date: 20221018
  Transmission Date: 20230112
  Serious: Yes (Other)
  Sender: FDA-Public Use
  Company Number: DE-BRISTOL-MYERS SQUIBB COMPANY-2022-067977

PATIENT
  Age: 59 Year
  Sex: Female
  Weight: 64 kg

DRUGS (1)
  1. ZEPOSIA [Suspect]
     Active Substance: OZANIMOD HYDROCHLORIDE
     Indication: Multiple sclerosis
     Route: 048
     Dates: start: 202111, end: 202112

REACTIONS (4)
  - Hallucination, auditory [Recovered/Resolved]
  - Flashback [Recovered/Resolved]
  - Anxiety [Recovered/Resolved]
  - Somatic symptom disorder [Recovered/Resolved]

NARRATIVE: CASE EVENT DATE: 20211101
